FAERS Safety Report 24094450 (Version 2)
Quarter: 2024Q3

REPORT INFORMATION
  Report Type: Spontaneous
  Country: DE (occurrence: DE)
  Receive Date: 20240716
  Receipt Date: 20240720
  Transmission Date: 20241017
  Serious: Yes (Death, Other)
  Sender: SANDOZ
  Company Number: DE-ROCHE-2909745

PATIENT
  Age: 14 Year
  Sex: Male

DRUGS (6)
  1. BRENTUXIMAB VEDOTIN [Suspect]
     Active Substance: BRENTUXIMAB VEDOTIN
     Indication: Hodgkin^s disease
     Dosage: 8 DF, Q3W
     Route: 065
  2. CYCLOPHOSPHAMIDE [Suspect]
     Active Substance: CYCLOPHOSPHAMIDE
     Indication: Hodgkin^s disease
     Dosage: UNK, UNKNOWN
     Route: 065
  3. ONCOVIN [Suspect]
     Active Substance: VINCRISTINE SULFATE
     Indication: Hodgkin^s disease
     Dosage: UNK UNK, UNKNOWN
     Route: 065
  4. PREDNISONE [Suspect]
     Active Substance: PREDNISONE
     Indication: Hodgkin^s disease
     Dosage: UNK UNK, UNKNOWN
     Route: 065
  5. PROCARBAZINE [Suspect]
     Active Substance: PROCARBAZINE
     Indication: Hodgkin^s disease
     Dosage: UNK, UNKNOWN
     Route: 065
  6. RITUXIMAB [Suspect]
     Active Substance: RITUXIMAB
     Indication: Hodgkin^s disease
     Dosage: UNK, UNKNOWN
     Route: 065

REACTIONS (3)
  - Septic shock [Fatal]
  - Abdominal infection [Fatal]
  - Off label use [Fatal]
